FAERS Safety Report 15888000 (Version 4)
Quarter: 2020Q1

REPORT INFORMATION
  Report Type: Spontaneous
  Country: US (occurrence: US)
  Receive Date: 20190130
  Receipt Date: 20200129
  Transmission Date: 20200409
  Serious: Yes (Other)
  Sender: FDA-Public Use
  Company Number: US-PFIZER INC-2019042461

PATIENT
  Age: 40 Year
  Sex: Female

DRUGS (1)
  1. IBRANCE [Suspect]
     Active Substance: PALBOCICLIB
     Dosage: 125 MG, CYCLIC (DAILY FOR 21 DAYS/THEN 7 DAYS OFF)
     Route: 048
     Dates: start: 20181128

REACTIONS (4)
  - Vomiting [Unknown]
  - Nausea [Unknown]
  - Lower respiratory tract infection [Unknown]
  - White blood cell count decreased [Unknown]
